FAERS Safety Report 6508335-3 (Version None)
Quarter: 2009Q4

REPORT INFORMATION
  Report Type: 
  Country: None (occurrence: None)
  Receive Date: 20091221
  Receipt Date: 20090806
  Transmission Date: 20100525
  Serious: No
  Sender: FDA-Public Use
  Company Number: US-ASTRAZENECA-2008UW05018

PATIENT
  Age: 76 Year
  Sex: Male

DRUGS (4)
  1. CRESTOR [Suspect]
     Route: 048
  2. AVAPRO [Concomitant]
     Indication: HYPERTENSION
  3. GABAPENTIN [Concomitant]
     Indication: NEUROPATHY PERIPHERAL
  4. GLYBURIDE [Concomitant]
     Indication: DIABETES MELLITUS

REACTIONS (1)
  - HAIR GROWTH ABNORMAL [None]
